FAERS Safety Report 7316073-2 (Version None)
Quarter: 2011Q1

REPORT INFORMATION
  Report Type: 
  Country: None (occurrence: None)
  Receive Date: 20110225
  Receipt Date: 20110223
  Transmission Date: 20110831
  Serious: Yes (Death)
  Sender: FDA-Public Use
  Company Number: FR-CEPHALON-2010006544

PATIENT
  Age: 43 Year
  Sex: Male

DRUGS (6)
  1. ACTIQ [Suspect]
     Indication: CANCER PAIN
     Route: 002
     Dates: start: 20101218, end: 20101218
  2. ACTISKENAN [Concomitant]
     Dates: start: 20101013
  3. DURAGESIC-100 [Concomitant]
     Indication: CANCER PAIN
     Dates: start: 20101013
  4. DURAGESIC-100 [Concomitant]
     Dates: start: 20101218
  5. XELODA [Concomitant]
  6. ACTISKENAN [Concomitant]
     Dates: start: 20101201

REACTIONS (2)
  - DRUG PRESCRIBING ERROR [None]
  - METASTATIC NEOPLASM [None]
